FAERS Safety Report 10750756 (Version 1)
Quarter: 2015Q1

REPORT INFORMATION
  Report Type: Spontaneous
  Country: US (occurrence: None)
  Receive Date: 20150129
  Receipt Date: 20150129
  Transmission Date: 20150721
  Serious: Yes (Hospitalization)
  Sender: FDA-Public Use
  Company Number: None

PATIENT
  Age: 59 Year
  Sex: Male
  Weight: 60.5 kg

DRUGS (1)
  1. FUROSEMIDE. [Suspect]
     Active Substance: FUROSEMIDE
     Indication: ASCITES
     Dosage: 100 MG, EVERY DAY, PO
     Route: 048
     Dates: start: 20130717, end: 20150126

REACTIONS (4)
  - Hyponatraemia [None]
  - Hypophagia [None]
  - Unevaluable event [None]
  - Polyuria [None]

NARRATIVE: CASE EVENT DATE: 20150126
